FAERS Safety Report 7288734-5 (Version None)
Quarter: 2011Q1

REPORT INFORMATION
  Report Type: 
  Country: None (occurrence: None)
  Receive Date: 20110201
  Receipt Date: 20110119
  Transmission Date: 20110831
  Serious: Yes (Death, Other)
  Sender: FDA-Public Use
  Company Number: 2011S1000029

PATIENT
  Age: 47 Year
  Sex: Male

DRUGS (1)
  1. INOMAX [Suspect]
     Dosage: 10 PPM;CONT;INH
     Route: 055
     Dates: start: 20110112, end: 20110119

REACTIONS (3)
  - PNEUMOTHORAX [None]
  - PULMONARY HAEMORRHAGE [None]
  - CARDIAC ARREST [None]
